FAERS Safety Report 10589806 (Version 3)
Quarter: 2014Q4

REPORT INFORMATION
  Report Type: Report from Study
  Country: BE (occurrence: BE)
  Receive Date: 20141118
  Receipt Date: 20141222
  Transmission Date: 20150529
  Serious: Yes (Hospitalization)
  Sender: FDA-Public Use
  Company Number: BE-NOVOPROD-428564

PATIENT
  Age: 69 Year
  Sex: Female
  Weight: 53 kg

DRUGS (1)
  1. LIRAGLUTIDE FLEXPEN [Suspect]
     Active Substance: LIRAGLUTIDE
     Indication: TYPE 1 DIABETES MELLITUS
     Dosage: 1.8,MG,QD
     Route: 058
     Dates: start: 20140804, end: 20141112

REACTIONS (1)
  - Volvulus [Recovered/Resolved with Sequelae]

NARRATIVE: CASE EVENT DATE: 20141107
